FAERS Safety Report 12547967 (Version 1)
Quarter: 2016Q3

REPORT INFORMATION
  Report Type: Spontaneous
  Country: IN (occurrence: None)
  Receive Date: 20160711
  Receipt Date: 20160711
  Transmission Date: 20161109
  Serious: No
  Sender: FDA-Public Use
  Company Number: None

PATIENT
  Age: 28 Year
  Sex: Male
  Weight: 58.8 kg

DRUGS (5)
  1. MINTOP10 [Suspect]
     Active Substance: MINOXIDIL
     Indication: ALOPECIA
     Dosage: 1 DROP ON SCALP
     Route: 061
  2. KERABLAK [Concomitant]
  3. NEUROKIND [Concomitant]
  4. DUTAMAX [Concomitant]
  5. TRICHOGRO MINIMUM [Concomitant]

REACTIONS (1)
  - Chest discomfort [None]

NARRATIVE: CASE EVENT DATE: 20160701
